FAERS Safety Report 16482135 (Version 5)
Quarter: 2020Q3

REPORT INFORMATION
  Report Type: Spontaneous
  Country: US (occurrence: US)
  Receive Date: 20190627
  Receipt Date: 20200902
  Transmission Date: 20201102
  Serious: No
  Sender: FDA-Public Use
  Company Number: US-SA-2019SA173735

PATIENT

DRUGS (1)
  1. AUBAGIO [Suspect]
     Active Substance: TERIFLUNOMIDE
     Indication: MULTIPLE SCLEROSIS
     Dosage: 14 MG, QD
     Route: 048
     Dates: start: 20190501

REACTIONS (11)
  - Stress [Unknown]
  - Pain in extremity [Unknown]
  - Condition aggravated [Unknown]
  - Back pain [Unknown]
  - Dizziness [Unknown]
  - Fatigue [Unknown]
  - Dysstasia [Unknown]
  - Hair texture abnormal [Unknown]
  - Pain [Unknown]
  - Alopecia [Unknown]
  - Product dose omission issue [Unknown]

NARRATIVE: CASE EVENT DATE: 20190105
